FAERS Safety Report 13128407 (Version 2)
Quarter: 2017Q2

REPORT INFORMATION
  Report Type: Spontaneous
  Country: US (occurrence: US)
  Receive Date: 20170118
  Receipt Date: 20170417
  Transmission Date: 20170830
  Serious: No
  Sender: FDA-Public Use
  Company Number: GXBR2016US003639

PATIENT
  Sex: Male
  Weight: 126.98 kg

DRUGS (2)
  1. SOLARAZE [Suspect]
     Active Substance: DICLOFENAC SODIUM
     Indication: INFLAMMATION
     Dosage: UNK DF, QID
     Route: 061
     Dates: start: 20161215
  2. DICLOFENAC SODIUM D.R. TABLETS USP [Suspect]
     Active Substance: DICLOFENAC SODIUM
     Indication: INFLAMMATION
     Dosage: 75 MG, BID
     Route: 048
     Dates: start: 201606

REACTIONS (2)
  - Drug ineffective [Not Recovered/Not Resolved]
  - Musculoskeletal stiffness [Not Recovered/Not Resolved]
